FAERS Safety Report 7883336-1 (Version None)
Quarter: 2011Q4

REPORT INFORMATION
  Report Type: 
  Country: None (occurrence: None)
  Receive Date: 20111102
  Receipt Date: 20111018
  Transmission Date: 20120403
  Serious: Yes (Hospitalization)
  Sender: FDA-Public Use
  Company Number: US-ELI_LILLY_AND_COMPANY-US200912004441

PATIENT
  Sex: Male

DRUGS (18)
  1. FORTEO [Suspect]
     Indication: OSTEOPOROSIS
     Dosage: 20 UG, DAILY (1/D)
     Dates: start: 20091209
  2. XALATAN [Concomitant]
  3. FORTEO [Suspect]
     Dosage: 20 UG, QD
  4. MYSOLINE [Concomitant]
  5. PRILOSEC [Concomitant]
  6. ASPIRIN [Concomitant]
     Dosage: UNK, UNKNOWN
  7. CRESTOR [Concomitant]
  8. MULTI-VITAMIN [Concomitant]
  9. LOVAZA [Concomitant]
  10. FORTEO [Suspect]
     Dosage: 20 UG, DAILY (1/D)
  11. VALSARTAN [Concomitant]
  12. OXYBUTYNIN CHLORIDE [Concomitant]
  13. CALCIUM PLUS D3 [Concomitant]
  14. CARVEDIL [Concomitant]
  15. SENNA SPP. [Concomitant]
  16. TYLENOL (CAPLET) [Concomitant]
  17. ZETIA [Concomitant]
  18. VITAMIN D [Concomitant]

REACTIONS (16)
  - VIRAL INFECTION [None]
  - OVERDOSE [None]
  - URINE FLOW DECREASED [None]
  - CALCULUS URINARY [None]
  - MOVEMENT DISORDER [None]
  - INJECTION SITE PAIN [None]
  - INTENTIONAL OVERDOSE [None]
  - DIARRHOEA [None]
  - URINARY TRACT OBSTRUCTION [None]
  - MUSCLE DISORDER [None]
  - MYALGIA [None]
  - ANXIETY [None]
  - HICCUPS [None]
  - ARTHRITIS [None]
  - PAIN IN EXTREMITY [None]
  - INJECTION SITE ERYTHEMA [None]
